FAERS Safety Report 22396147 (Version 1)
Quarter: 2023Q2

REPORT INFORMATION
  Report Type: Spontaneous
  Country: US (occurrence: US)
  Receive Date: 20230601
  Receipt Date: 20230601
  Transmission Date: 20230721
  Serious: No
  Sender: FDA-Public Use
  Company Number: US-APIL-2311709US

PATIENT
  Age: 49 Year
  Sex: Female

DRUGS (1)
  1. LILETTA [Suspect]
     Active Substance: LEVONORGESTREL
     Indication: Contraception
     Dosage: 52 MG, SINGLE
     Route: 015
     Dates: start: 202212, end: 20230406

REACTIONS (2)
  - Embedded device [Unknown]
  - Product complaint [Unknown]

NARRATIVE: CASE EVENT DATE: 20230324
